FAERS Safety Report 5468181-9 (Version None)
Quarter: 2007Q3

REPORT INFORMATION
  Report Type: 
  Country: None (occurrence: None)
  Receive Date: 20070924
  Receipt Date: 20070910
  Transmission Date: 20080115
  Serious: Yes (Other)
  Sender: FDA-Public Use
  Company Number: B0487755A

PATIENT
  Sex: 0

DRUGS (1)
  1. VALACYCLOVIR [Suspect]
     Indication: CYTOMEGALOVIRUS INFECTION
     Dosage: 2 GRAM (S) FOUR TIMES PER DAY/ TRANSP
     Route: 064

REACTIONS (7)
  - DRUG EXPOSURE DURING PREGNANCY [None]
  - FOETAL DISORDER [None]
  - GASTROINTESTINAL DISORDER [None]
  - HEPATOMEGALY [None]
  - MECONIUM ILEUS [None]
  - ULTRASOUND ANTENATAL SCREEN ABNORMAL [None]
  - VIRAL LOAD INCREASED [None]
